FAERS Safety Report 9226728 (Version 1)
Quarter: 2013Q2

REPORT INFORMATION
  Report Type: Spontaneous
  Country: US (occurrence: None)
  Receive Date: 20130410
  Receipt Date: 20130410
  Transmission Date: 20140414
  Serious: Yes (Hospitalization)
  Sender: FDA-Public Use
  Company Number: None

PATIENT
  Age: 64 Year
  Sex: Female
  Weight: 94.5 kg

DRUGS (18)
  1. SYNTHROID [Suspect]
     Indication: HYPOTHYROIDISM
     Dosage: 200MCG DAILY PO
     Route: 048
  2. RANEXA [Concomitant]
  3. LOPRESSOR [Concomitant]
  4. MAXALT [Concomitant]
  5. NEXIUM [Concomitant]
  6. CA [Concomitant]
  7. NORVASC [Concomitant]
  8. ZOFRAN [Concomitant]
  9. TYLENOL [Concomitant]
  10. NTG [Concomitant]
  11. ASA [Concomitant]
  12. IMURAN [Concomitant]
  13. PREDNISONE [Concomitant]
  14. NIACIN [Concomitant]
  15. HCTZ [Concomitant]
  16. VOLTAREN [Concomitant]
  17. PLAVIX [Concomitant]
  18. WELLBUTRIN [Concomitant]

REACTIONS (3)
  - Supraventricular tachycardia [None]
  - Hypertension [None]
  - Hyperthyroidism [None]
